FAERS Safety Report 6075608-0 (Version None)
Quarter: 2009Q1

REPORT INFORMATION
  Report Type: 
  Country: None (occurrence: None)
  Receive Date: 20090121
  Receipt Date: 20080222
  Transmission Date: 20090719
  Serious: Yes (Hospitalization, Other)
  Sender: FDA-Public Use
  Company Number: HQWYE785603AUG04

PATIENT
  Age: 53 Year
  Sex: Female
  Weight: 40.86 kg

DRUGS (2)
  1. PREMPRO [Suspect]
     Indication: HOT FLUSH
  2. PREMPRO [Suspect]
     Indication: MENSTRUATION IRREGULAR

REACTIONS (1)
  - BREAST CANCER [None]
